FAERS Safety Report 4612663-6 (Version None)
Quarter: 2005Q1

REPORT INFORMATION
  Report Type: 
  Country: None (occurrence: None)
  Receive Date: 20050316
  Receipt Date: 20050302
  Transmission Date: 20050727
  Serious: Yes (Hospitalization)
  Sender: FDA-Public Use
  Company Number: USA050392253

PATIENT
  Age: 65 Year
  Sex: Female

DRUGS (3)
  1. ALIMTA [Suspect]
     Indication: NON-SMALL CELL LUNG CANCER
     Dosage: 712 MG
     Dates: start: 20050118
  2. VITAMIN SUPPLEMENTATION [Concomitant]
  3. DEXAMETHASONE [Concomitant]

REACTIONS (3)
  - DEHYDRATION [None]
  - NEUTROPENIA [None]
  - SUBCLAVIAN VEIN THROMBOSIS [None]
